FAERS Safety Report 6665587-7 (Version None)
Quarter: 2010Q2

REPORT INFORMATION
  Report Type: 
  Country: None (occurrence: None)
  Receive Date: 20100402
  Receipt Date: 20100320
  Transmission Date: 20101027
  Serious: Yes (Other)
  Sender: FDA-Public Use
  Company Number: US-RB-002879-10

PATIENT
  Sex: Female

DRUGS (2)
  1. SUBOXONE [Suspect]
     Dosage: 4 MG EVERY OTHER DAY
     Route: 060
  2. SUBOXONE [Suspect]
     Route: 065

REACTIONS (2)
  - GRAND MAL CONVULSION [None]
  - VOMITING [None]
